FAERS Safety Report 18298915 (Version 4)
Quarter: 2024Q3

REPORT INFORMATION
  Report Type: Spontaneous
  Country: RU (occurrence: RU)
  Receive Date: 20200922
  Receipt Date: 20240916
  Transmission Date: 20241017
  Serious: Yes (Other)
  Sender: SANOFI AVENTIS
  Company Number: RU-SA-2020SA254834

PATIENT
  Age: 34 Year
  Sex: Female
  Weight: 61 kg

DRUGS (2)
  1. ENOXAPARIN SODIUM [Suspect]
     Active Substance: ENOXAPARIN SODIUM
     Indication: Hypercoagulation
     Dosage: 0.4 ML, QD
     Route: 058
     Dates: start: 202007
  2. VITAMINS NOS [Concomitant]
     Active Substance: VITAMINS
     Indication: Pregnancy
     Dosage: 1 DF, QD
     Route: 048
     Dates: start: 202007

REACTIONS (4)
  - Drug dependence, antepartum [Unknown]
  - Exposure during pregnancy [Unknown]
  - Product availability issue [Unknown]
  - Off label use [Unknown]

NARRATIVE: CASE EVENT DATE: 20200701
